FAERS Safety Report 5265317-X (Version None)
Quarter: 2007Q1

REPORT INFORMATION
  Report Type: 
  Country: None (occurrence: None)
  Receive Date: 20070314
  Receipt Date: 20070308
  Transmission Date: 20070707
  Serious: Yes (Hospitalization)
  Sender: FDA-Public Use
  Company Number: JP-GILEAD-2007-0011518

PATIENT
  Sex: Female

DRUGS (3)
  1. HEPSERA [Suspect]
     Indication: HEPATITIS B
     Route: 048
  2. LAMIVUDINE [Suspect]
     Indication: HEPATITIS B
     Route: 048
  3. FAMOTIDINE [Concomitant]

REACTIONS (1)
  - THROMBOCYTOPENIC PURPURA [None]
